FAERS Safety Report 7825199-6 (Version None)
Quarter: 2011Q4

REPORT INFORMATION
  Report Type: 
  Country: None (occurrence: None)
  Receive Date: 20111019
  Receipt Date: 20111014
  Transmission Date: 20120403
  Serious: Yes (Hospitalization)
  Sender: FDA-Public Use
  Company Number: US-PFIZER INC-2011186863

PATIENT
  Sex: Male
  Weight: 78.2 kg

DRUGS (21)
  1. SUTENT [Suspect]
     Dosage: 25 MG, ALTERNATE DAY
     Dates: start: 20110610, end: 20110624
  2. SUTENT [Suspect]
     Dosage: 25 MG, UNK
     Dates: end: 20110811
  3. OXYCODONE [Concomitant]
     Indication: PAIN
     Dosage: 15 MG, UNK
  4. ASA TABS [Concomitant]
     Dosage: 81 MG, 1X/DAY
  5. FISH OIL [Concomitant]
  6. SUTENT [Suspect]
     Dosage: 25 MG, 1X/DAY
     Dates: start: 20110501, end: 20110501
  7. OXYCONTIN [Concomitant]
     Indication: PAIN
     Dosage: 10 MG, CR
  8. CRESTOR [Concomitant]
     Indication: HYPERLIPIDAEMIA
     Dosage: 5 MG, UNK
     Dates: start: 20110402
  9. CRESTOR [Concomitant]
     Dosage: 10 MG, 1X/DAY
  10. MILK OF MAGNESIA TAB [Concomitant]
     Dosage: SUSPENSION
  11. PREVACID [Concomitant]
     Dosage: 30 MG, 1X/DAY PRN
  12. ENALAPRIL [Concomitant]
     Dosage: 2.5 MG, UNK
  13. CENTRUM SILVER [Concomitant]
     Dosage: 1 DF, 1X/DAY
  14. METOPROLOL [Concomitant]
     Dosage: 50 MG, ER
  15. ONDANSETRON [Concomitant]
     Indication: VOMITING
  16. OXYCODONE HCL [Concomitant]
     Indication: PAIN
     Dosage: 1 CAP EVERY 4 HOURS AS NEEDED
  17. LEVAQUIN [Concomitant]
     Dosage: 500 MG, 1X/DAY
  18. HYTRIN [Concomitant]
     Dosage: 2 MG, 1X/DAY
  19. SUTENT [Suspect]
     Dosage: 25 MG, 1X/DAY
     Dates: start: 20110625, end: 20110709
  20. ONDANSETRON [Concomitant]
     Indication: NAUSEA
     Dosage: 4 MG, EVERY 8 HOURS AS NEEDED
  21. MYLICON [Concomitant]
     Dosage: 0.6 ML, 4X/DAY AS NEEDED

REACTIONS (3)
  - RASH [None]
  - CONSTIPATION [None]
  - PYREXIA [None]
